FAERS Safety Report 17239118 (Version 1)
Quarter: 2020Q1

REPORT INFORMATION
  Report Type: Spontaneous
  Country: US (occurrence: US)
  Receive Date: 20200106
  Receipt Date: 20200106
  Transmission Date: 20200409
  Serious: No
  Sender: FDA-Public Use
  Company Number: US-ELI_LILLY_AND_COMPANY-US202001001397

PATIENT
  Age: 38 Year
  Sex: Female

DRUGS (1)
  1. EMGALITY [Suspect]
     Active Substance: GALCANEZUMAB-GNLM
     Indication: PRODUCT USED FOR UNKNOWN INDICATION
     Dosage: 1 DOSAGE FORM, UNKNOWN
     Route: 065
     Dates: end: 201907

REACTIONS (24)
  - Incontinence [Unknown]
  - Localised infection [Unknown]
  - Memory impairment [Unknown]
  - Weight increased [Unknown]
  - Binge eating [Unknown]
  - Gastrointestinal disorder [Unknown]
  - Arthritis [Unknown]
  - Visual impairment [Unknown]
  - Conjunctivitis [Unknown]
  - Eating disorder symptom [Unknown]
  - Immune system disorder [Unknown]
  - Drug intolerance [Unknown]
  - Asthma [Unknown]
  - Dermatitis [Unknown]
  - General physical health deterioration [Unknown]
  - Urticaria [Unknown]
  - Acne [Unknown]
  - Musculoskeletal discomfort [Unknown]
  - Nasal oedema [Unknown]
  - Headache [Unknown]
  - Fungal infection [Unknown]
  - Ear infection [Unknown]
  - Burning sensation [Unknown]
  - Obsessive-compulsive disorder [Unknown]
